FAERS Safety Report 23442263 (Version 1)
Quarter: 2024Q1

REPORT INFORMATION
  Report Type: Spontaneous
  Country: None (occurrence: US)
  Receive Date: 20240125
  Receipt Date: 20240125
  Transmission Date: 20240409
  Serious: Yes (Other)
  Sender: FDA-Public Use
  Company Number: US-SERB S.A.S.-2151952

PATIENT
  Age: 56 Year
  Sex: Male

DRUGS (2)
  1. CROFAB [Suspect]
     Active Substance: CROTALIDAE POLYVALENT IMMUNE FAB (OVINE)
     Indication: Snake bite
  2. ELIQUIS [Concomitant]
     Active Substance: APIXABAN
     Route: 065

REACTIONS (4)
  - Acute respiratory failure [Unknown]
  - Anaphylactic shock [Unknown]
  - Anaphylactic reaction [Unknown]
  - Drug ineffective [Unknown]
